FAERS Safety Report 13717503 (Version 1)
Quarter: 2017Q3

REPORT INFORMATION
  Report Type: Spontaneous
  Country: US (occurrence: US)
  Receive Date: 20170703
  Receipt Date: 20170703
  Transmission Date: 20171127
  Serious: Yes (Hospitalization)
  Sender: FDA-Public Use
  Company Number: None

PATIENT
  Age: 48 Year
  Sex: Male
  Weight: 124.7 kg

DRUGS (17)
  1. DIOVAN [Concomitant]
     Active Substance: VALSARTAN
  2. SYMBICORT [Concomitant]
     Active Substance: BUDESONIDE\FORMOTEROL FUMARATE DIHYDRATE
  3. HYDRALAZINE [Suspect]
     Active Substance: HYDRALAZINE HYDROCHLORIDE
     Indication: HYPERTENSION
     Dates: start: 20110928, end: 20140421
  4. NOVOLOG [Concomitant]
     Active Substance: INSULIN ASPART
  5. TAZTIA XT [Concomitant]
     Active Substance: DILTIAZEM HYDROCHLORIDE
  6. ERGOCALCIFEROL. [Concomitant]
     Active Substance: ERGOCALCIFEROL
  7. CYMBALTA [Concomitant]
     Active Substance: DULOXETINE HYDROCHLORIDE
  8. LASIX [Concomitant]
     Active Substance: FUROSEMIDE
  9. SPIRIVA [Concomitant]
     Active Substance: TIOTROPIUM BROMIDE MONOHYDRATE
  10. PROVENTIL [Concomitant]
     Active Substance: ALBUTEROL
  11. ABILIFY [Concomitant]
     Active Substance: ARIPIPRAZOLE
  12. MAGNESIUM OXIDE. [Concomitant]
     Active Substance: MAGNESIUM OXIDE
  13. LANTUS [Concomitant]
     Active Substance: INSULIN GLARGINE
  14. NEXIUM [Concomitant]
     Active Substance: ESOMEPRAZOLE MAGNESIUM
  15. PREDNISONE. [Concomitant]
     Active Substance: PREDNISONE
  16. ASPIRIN. [Concomitant]
     Active Substance: ASPIRIN
  17. BUPROPION. [Concomitant]
     Active Substance: BUPROPION

REACTIONS (3)
  - Hepatitis [None]
  - Drug-induced liver injury [None]
  - Non-alcoholic steatohepatitis [None]

NARRATIVE: CASE EVENT DATE: 20140419
